FAERS Safety Report 13586970 (Version 1)
Quarter: 2017Q2

REPORT INFORMATION
  Report Type: Spontaneous
  Country: US (occurrence: US)
  Receive Date: 20170526
  Receipt Date: 20170526
  Transmission Date: 20170830
  Serious: No
  Sender: FDA-Public Use
  Company Number: US-ROCHE-788326

PATIENT
  Sex: Female
  Weight: 90.9 kg

DRUGS (3)
  1. VALCYTE [Suspect]
     Active Substance: VALGANCICLOVIR HYDROCHLORIDE
     Indication: CHRONIC FATIGUE SYNDROME
     Route: 048
  2. ADDERALL [Concomitant]
     Active Substance: AMPHETAMINE ASPARTATE\AMPHETAMINE SULFATE\DEXTROAMPHETAMINE SACCHARATE\DEXTROAMPHETAMINE SULFATE
     Route: 065
  3. KLONOPIN [Concomitant]
     Active Substance: CLONAZEPAM
     Dosage: DOSE: 1-1.5 MG BED TIME
     Route: 065

REACTIONS (4)
  - Fatigue [Unknown]
  - Restlessness [Unknown]
  - Arthralgia [Unknown]
  - Myalgia [Unknown]
